FAERS Safety Report 24757477 (Version 1)
Quarter: 2024Q4

REPORT INFORMATION
  Report Type: Spontaneous
  Country: US (occurrence: US)
  Receive Date: 20241220
  Receipt Date: 20241220
  Transmission Date: 20250114
  Serious: Yes (Hospitalization, Other)
  Sender: ASTELLAS
  Company Number: US-ASTELLAS-2024-AER-025623

PATIENT
  Age: 68 Year
  Sex: Male

DRUGS (3)
  1. TACROLIMUS [Suspect]
     Active Substance: TACROLIMUS
     Indication: Heart transplant
     Route: 065
     Dates: start: 201603
  2. PREDNISONE [Concomitant]
     Active Substance: PREDNISONE
     Indication: Heart transplant
     Route: 065
     Dates: start: 201603
  3. MYCOPHENOLIC ACID [Concomitant]
     Active Substance: MYCOPHENOLIC ACID
     Indication: Heart transplant
     Route: 065
     Dates: start: 201603

REACTIONS (5)
  - Mycobacterium marinum infection [Recovered/Resolved]
  - Atypical mycobacterial infection [Recovered/Resolved]
  - Disseminated tuberculosis [Recovered/Resolved]
  - Eosinophilia [Recovered/Resolved]
  - Amoebiasis [Recovered/Resolved]

NARRATIVE: CASE EVENT DATE: 20170101
